FAERS Safety Report 20457689 (Version 2)
Quarter: 2023Q1

REPORT INFORMATION
  Report Type: Report from Study
  Country: CR (occurrence: CR)
  Receive Date: 20220210
  Receipt Date: 20230110
  Transmission Date: 20230418
  Serious: Yes (Life-Threatening)
  Sender: FDA-Public Use
  Company Number: CR-NOVARTISPH-NVSC2022CR029075

PATIENT
  Age: 55 Year
  Sex: Female

DRUGS (1)
  1. SECUKINUMAB [Suspect]
     Active Substance: SECUKINUMAB
     Indication: Psoriatic arthropathy
     Dosage: 150 MG, QMO
     Route: 058
     Dates: start: 20211210

REACTIONS (5)
  - Pain [Recovering/Resolving]
  - Feeling abnormal [Recovering/Resolving]
  - Psoriasis [Unknown]
  - Stress [Unknown]
  - Pain in extremity [Unknown]

NARRATIVE: CASE EVENT DATE: 20221101
